FAERS Safety Report 6436130-2 (Version None)
Quarter: 2009Q4

REPORT INFORMATION
  Report Type: 
  Country: None (occurrence: None)
  Receive Date: 20091111
  Receipt Date: 20091102
  Transmission Date: 20100525
  Serious: Yes (Hospitalization, Other)
  Sender: FDA-Public Use
  Company Number: GB-BAYER-200936128GPV

PATIENT
  Age: 49 Year
  Sex: Female
  Weight: 51 kg

DRUGS (9)
  1. BETAFERON [Suspect]
     Indication: MULTIPLE SCLEROSIS
     Dosage: STOPPED FOR TWO WEEKS IN AUG 2008
     Route: 058
     Dates: start: 19980701, end: 20080801
  2. BETAFERON [Suspect]
     Route: 058
     Dates: start: 20080101
  3. RISEDRONATE SODIUM [Concomitant]
     Indication: DRUG USE FOR UNKNOWN INDICATION
  4. BETAHISTINE [Concomitant]
     Indication: DRUG USE FOR UNKNOWN INDICATION
  5. LANSOPRAZOLE [Concomitant]
     Indication: DRUG USE FOR UNKNOWN INDICATION
  6. ALBUTEROL [Concomitant]
     Indication: DRUG USE FOR UNKNOWN INDICATION
     Route: 055
  7. SYMBICORT [Concomitant]
     Indication: DRUG USE FOR UNKNOWN INDICATION
     Route: 055
  8. CO-DYDRAMOL [Concomitant]
     Indication: DRUG USE FOR UNKNOWN INDICATION
  9. ZOPICLONE [Concomitant]
     Indication: DRUG USE FOR UNKNOWN INDICATION

REACTIONS (8)
  - ARTHRITIS [None]
  - C-REACTIVE PROTEIN INCREASED [None]
  - CHILLS [None]
  - CONNECTIVE TISSUE DISORDER [None]
  - FATIGUE [None]
  - HYPERPYREXIA [None]
  - INJECTION SITE INFLAMMATION [None]
  - UNDERWEIGHT [None]
